FAERS Safety Report 21005367 (Version 1)
Quarter: 2022Q2

REPORT INFORMATION
  Report Type: Spontaneous
  Country: CA (occurrence: CA)
  Receive Date: 20220624
  Receipt Date: 20220624
  Transmission Date: 20220720
  Serious: Yes (Other)
  Sender: FDA-Public Use
  Company Number: CA-JNJFOC-20220639945

PATIENT
  Age: 3 Decade
  Sex: Female
  Weight: 68 kg

DRUGS (6)
  1. SIMPONI [Suspect]
     Active Substance: GOLIMUMAB
     Indication: Ankylosing spondylitis
     Route: 058
     Dates: start: 202002, end: 202106
  2. STELARA [Suspect]
     Active Substance: USTEKINUMAB
     Indication: Crohn^s disease
     Route: 058
     Dates: start: 202112
  3. STELARA [Suspect]
     Active Substance: USTEKINUMAB
     Indication: Ankylosing spondylitis
  4. SULFASALAZINE [Concomitant]
     Active Substance: SULFASALAZINE
  5. COVID-19 VACCINE [Concomitant]
     Dates: start: 20220108
  6. HUMIRA [Concomitant]
     Active Substance: ADALIMUMAB
     Dates: start: 202106, end: 202112

REACTIONS (2)
  - Crohn^s disease [Recovering/Resolving]
  - Ankylosing spondylitis [Not Recovered/Not Resolved]
